FAERS Safety Report 21370379 (Version 11)
Quarter: 2024Q3

REPORT INFORMATION
  Report Type: Report from Study
  Country: US (occurrence: US)
  Receive Date: 20220923
  Receipt Date: 20240927
  Transmission Date: 20241016
  Serious: Yes (Other)
  Sender: TAKEDA
  Company Number: US-TAKEDA-US202023476

PATIENT
  Age: 69 Year
  Sex: Female

DRUGS (3)
  1. HUMAN IMMUNOGLOBULIN G [Suspect]
     Active Substance: HUMAN IMMUNOGLOBULIN G
     Indication: Primary immunodeficiency syndrome
     Dosage: 10 GRAM, 1/WEEK
     Route: 058
  2. HUMAN IMMUNOGLOBULIN G [Suspect]
     Active Substance: HUMAN IMMUNOGLOBULIN G
     Indication: Immunodeficiency common variable
     Dosage: 5 GRAM, 1/WEEK
     Route: 065
  3. HUMAN IMMUNOGLOBULIN G [Suspect]
     Active Substance: HUMAN IMMUNOGLOBULIN G
     Dosage: UNK
     Route: 058

REACTIONS (18)
  - Lymphoma [Unknown]
  - Breast cancer female [Unknown]
  - Infection [Unknown]
  - Nasopharyngitis [Unknown]
  - COVID-19 [Unknown]
  - Osteoporosis [Unknown]
  - Liver function test decreased [Unknown]
  - Lung disorder [Unknown]
  - Familial tremor [Unknown]
  - Autonomic nervous system imbalance [Unknown]
  - Blood immunoglobulin G increased [Unknown]
  - Infusion site bruising [Unknown]
  - Infusion site scar [Unknown]
  - Device difficult to use [Unknown]
  - Aphonia [Unknown]
  - Infusion site discharge [Unknown]
  - Sinusitis [Recovered/Resolved]
  - Upper respiratory tract infection [Recovered/Resolved]

NARRATIVE: CASE EVENT DATE: 20240206
